FAERS Safety Report 6540587-6 (Version None)
Quarter: 2010Q1

REPORT INFORMATION
  Report Type: 
  Country: None (occurrence: None)
  Receive Date: 20100112
  Receipt Date: 20091008
  Transmission Date: 20100710
  Serious: No
  Sender: FDA-Public Use
  Company Number: 2009-00656

PATIENT
  Age: 46 Year
  Sex: Female
  Weight: 68.0396 kg

DRUGS (2)
  1. COLD REMEDY NASAL GEL [Suspect]
     Dosage: BID FOR 6-8 DAYS; 6 MONTHS AGO FOR 6-8 DAYS
  2. TRAMADOL HCL [Concomitant]

REACTIONS (1)
  - ANOSMIA [None]
